FAERS Safety Report 10736995 (Version 5)
Quarter: 2015Q3

REPORT INFORMATION
  Report Type: Report from Study
  Country: US (occurrence: US)
  Receive Date: 20150126
  Receipt Date: 20150714
  Transmission Date: 20151125
  Serious: Yes (Hospitalization)
  Sender: FDA-Public Use
  Company Number: US-ACTELION-A-NJ2015-111467

PATIENT
  Age: 70 Year
  Sex: Female

DRUGS (5)
  1. REVATIO [Suspect]
     Active Substance: SILDENAFIL CITRATE
     Indication: PULMONARY ARTERIAL HYPERTENSION
     Dosage: 20 MG, UNK
     Route: 048
     Dates: start: 20130426
  2. FLOLAN [Suspect]
     Active Substance: EPOPROSTENOL SODIUM
     Indication: PULMONARY ARTERIAL HYPERTENSION
     Dosage: 20 NG/KG, PER MIN
     Route: 048
     Dates: start: 20141117
  3. WARFARIN [Suspect]
     Active Substance: WARFARIN
     Dosage: 5 MG, T, SAT
     Route: 048
     Dates: start: 20130512
  4. WARFARIN [Suspect]
     Active Substance: WARFARIN
     Indication: PRODUCT USED FOR UNKNOWN INDICATION
     Dosage: 7.5 MG, S, M, W, TH
     Route: 048
     Dates: start: 20130512
  5. MACITENTAN [Suspect]
     Active Substance: MACITENTAN
     Indication: PULMONARY ARTERIAL HYPERTENSION
     Dosage: 10 MG, QD
     Route: 048
     Dates: start: 20140404

REACTIONS (7)
  - Fall [Recovering/Resolving]
  - Pneumonia [Unknown]
  - Haemarthrosis [Recovering/Resolving]
  - Internal haemorrhage [Recovered/Resolved]
  - Vasculitis [Unknown]
  - Abdominal wall haematoma [Recovered/Resolved]
  - Influenza [Unknown]

NARRATIVE: CASE EVENT DATE: 20150112
